FAERS Safety Report 9581503 (Version 1)
Quarter: 2013Q4

REPORT INFORMATION
  Report Type: Report from Study
  Country: AR (occurrence: AR)
  Receive Date: 20131002
  Receipt Date: 20131002
  Transmission Date: 20140711
  Serious: Yes (Other)
  Sender: FDA-Public Use
  Company Number: PHHY2013AR109512

PATIENT
  Sex: Female

DRUGS (4)
  1. DIOVAN [Suspect]
     Indication: HYPERTENSION
     Dosage: 0.5 DF, (80 MG) A DAY
     Route: 048
  2. DIOVAN [Suspect]
     Dosage: 1 DF, (80 MG) A DAY
     Route: 048
     Dates: end: 20130928
  3. DIOVAN [Suspect]
     Dosage: 1 DF, (160 MG) A DAY
     Route: 048
     Dates: start: 20130928
  4. ALPLAX [Concomitant]
     Indication: NERVOUSNESS
     Dosage: UNK UKN, UNK
     Route: 048

REACTIONS (5)
  - Cardiac fibrillation [Recovered/Resolved]
  - Hypertension [Recovering/Resolving]
  - Dizziness [Recovered/Resolved]
  - Headache [Recovered/Resolved]
  - Wrong technique in drug usage process [Unknown]
